FAERS Safety Report 21270514 (Version 1)
Quarter: 2022Q3

REPORT INFORMATION
  Report Type: Spontaneous
  Country: CN (occurrence: CN)
  Receive Date: 20220830
  Receipt Date: 20220830
  Transmission Date: 20221026
  Serious: Yes (Other)
  Sender: FDA-Public Use
  Company Number: CN-PFIZER INC-202201100165

PATIENT
  Age: 65 Year
  Sex: Male

DRUGS (5)
  1. CEFOPERAZONE SODIUM\SULBACTAM SODIUM [Suspect]
     Active Substance: CEFOPERAZONE SODIUM\SULBACTAM SODIUM
     Indication: Therapeutic procedure
     Dosage: 1 G, 3X/DAY
     Route: 041
     Dates: start: 20220804, end: 20220810
  2. VORICONAZOLE [Suspect]
     Active Substance: VORICONAZOLE
     Indication: Antifungal treatment
     Dosage: 0.2 G, 2X/DAY
     Route: 048
     Dates: start: 20220805, end: 20220814
  3. LINEZOLID [Suspect]
     Active Substance: LINEZOLID
     Indication: Antibiotic therapy
     Dosage: 0.6 G, 2X/DAY
     Route: 048
     Dates: start: 20220806, end: 20220816
  4. LINEZOLID [Suspect]
     Active Substance: LINEZOLID
     Indication: Anti-infective therapy
  5. VFEND [Concomitant]
     Active Substance: VORICONAZOLE
     Indication: Fungal infection
     Dosage: 0.2 G, 2X/DAY
     Dates: start: 20220814, end: 20220817

REACTIONS (4)
  - Staphylococcal infection [Unknown]
  - C-reactive protein increased [Unknown]
  - Pneumonitis [Unknown]
  - Disease progression [Unknown]

NARRATIVE: CASE EVENT DATE: 20220808
